FAERS Safety Report 6633156-0 (Version None)
Quarter: 2010Q1

REPORT INFORMATION
  Report Type: 
  Country: None (occurrence: None)
  Receive Date: 20100312
  Receipt Date: 20100302
  Transmission Date: 20100710
  Serious: Yes (Hospitalization, Other)
  Sender: FDA-Public Use
  Company Number: JP-PFIZER INC-2009280190

PATIENT
  Age: 59 Year
  Sex: Male
  Weight: 53.7 kg

DRUGS (14)
  1. SUNITINIB MALATE [Suspect]
     Indication: HEPATIC NEOPLASM MALIGNANT
     Dosage: 25 MG, 1X/DAY
     Route: 048
     Dates: start: 20090619
  2. VOGLIBOSE [Concomitant]
     Indication: DIABETES MELLITUS
     Dosage: UNK
     Route: 048
  3. AMARYL [Concomitant]
     Indication: DIABETES MELLITUS
     Dosage: UNK
     Route: 048
  4. LASIX [Concomitant]
     Indication: HYPERTENSION
     Dosage: UNK
     Route: 048
  5. HALCION [Concomitant]
     Indication: INSOMNIA
     Dosage: UNK
     Route: 048
  6. LIVACT [Concomitant]
     Indication: HEPATIC FUNCTION ABNORMAL
     Dosage: UNK
     Route: 048
  7. AMLODIPINE [Concomitant]
     Indication: HYPERTENSION
     Dosage: UNK
     Route: 048
  8. LOXONIN [Concomitant]
     Indication: BACK PAIN
     Dosage: UNK
     Route: 048
     Dates: start: 20090918
  9. PZC [Concomitant]
     Indication: BACK PAIN
     Dosage: UNK
     Route: 048
     Dates: start: 20090925
  10. OXYCONTIN [Concomitant]
     Indication: BACK PAIN
     Dosage: UNK
     Route: 048
     Dates: start: 20090925
  11. VOLTAREN [Concomitant]
     Indication: BACK PAIN
     Dosage: UNK
     Route: 061
     Dates: start: 20090821
  12. ADONA [Concomitant]
     Indication: HAEMOSTASIS
     Dosage: UNK
     Route: 048
     Dates: start: 20090928
  13. TRANSAMIN [Concomitant]
     Indication: HAEMOSTASIS
     Dosage: UNK
     Route: 048
     Dates: start: 20090928
  14. MUCOSOLVAN [Concomitant]
     Indication: PRODUCTIVE COUGH
     Dosage: UNK
     Route: 048
     Dates: start: 20091003

REACTIONS (3)
  - NEOPLASM MALIGNANT [None]
  - PHARYNGEAL CANCER STAGE UNSPECIFIED [None]
  - PHARYNGEAL HAEMORRHAGE [None]
